FAERS Safety Report 9243278 (Version 1)
Quarter: 2013Q2

REPORT INFORMATION
  Report Type: Spontaneous
  Country: US (occurrence: US)
  Receive Date: 20130419
  Receipt Date: 20130419
  Transmission Date: 20140414
  Serious: Yes (Other)
  Sender: FDA-Public Use
  Company Number: CHPA2013US006566

PATIENT
  Age: 60 Year
  Sex: Female

DRUGS (3)
  1. BENEFIBER PLUS HEART HEALTH [Suspect]
     Indication: CONSTIPATION
     Dosage: LESS THAN A SERVING, PRN
     Route: 048
  2. BENEFIBER PLUS HEART HEALTH [Suspect]
     Dosage: HALF OF A LITTLE MORE THAN 6 TSP, ONCE/SINGLE IN 16OZ
     Route: 048
     Dates: start: 20130415
  3. BYSTOLIC [Concomitant]
     Indication: HYPERTENSION
     Dosage: UNK, UNK
     Dates: start: 2007

REACTIONS (7)
  - Glaucoma [Not Recovered/Not Resolved]
  - Abdominal tenderness [Recovering/Resolving]
  - Frequent bowel movements [Recovered/Resolved]
  - Off label use [Unknown]
  - Wrong technique in drug usage process [Unknown]
  - Underdose [Unknown]
  - Incorrect dose administered [Unknown]
